FAERS Safety Report 4803891-5 (Version None)
Quarter: 2005Q3

REPORT INFORMATION
  Report Type: 
  Country: None (occurrence: None)
  Receive Date: 20050920
  Receipt Date: 20050620
  Transmission Date: 20060218
  Serious: No
  Sender: FDA-Public Use
  Company Number: US-YAMANOUCHI-YPA20050338

PATIENT

DRUGS (2)
  1. VESICARE [Suspect]
     Dosage: 5 MG QD PO;  10 MG AM PO
     Route: 048
     Dates: start: 20050501, end: 20050601
  2. VESICARE [Suspect]
     Dosage: 5 MG QD PO;  10 MG AM PO
     Route: 048
     Dates: start: 20050601

REACTIONS (1)
  - VISION BLURRED [None]
